FAERS Safety Report 25609615 (Version 1)
Quarter: 2025Q3

REPORT INFORMATION
  Report Type: Spontaneous
  Country: US (occurrence: US)
  Receive Date: 20250728
  Receipt Date: 20250728
  Transmission Date: 20251021
  Serious: No
  Sender: SANOFI AVENTIS
  Company Number: US-SA-2025SA214525

PATIENT
  Age: 7 Month
  Sex: Female

DRUGS (3)
  1. DUPIXENT [Suspect]
     Active Substance: DUPILUMAB
     Indication: Dermatitis atopic
     Dosage: 200 MG, Q4W
     Route: 058
  2. DESONIDE [Concomitant]
     Active Substance: DESONIDE
  3. HYDROXYZINE HYDROCHLORIDE [Concomitant]
     Active Substance: HYDROXYZINE HYDROCHLORIDE

REACTIONS (5)
  - Discomfort [Unknown]
  - Sleep disorder due to a general medical condition [Unknown]
  - Irritability [Unknown]
  - Insomnia [Unknown]
  - Rash [Unknown]

NARRATIVE: CASE EVENT DATE: 20250707
